FAERS Safety Report 25657101 (Version 2)
Quarter: 2025Q3

REPORT INFORMATION
  Report Type: Spontaneous
  Country: CA (occurrence: CA)
  Receive Date: 20250808
  Receipt Date: 20250819
  Transmission Date: 20251021
  Serious: Yes (Other)
  Sender: ALKEM
  Company Number: None

PATIENT
  Age: 10 Year
  Sex: Female

DRUGS (10)
  1. MYCOPHENOLATE MOFETIL [Suspect]
     Active Substance: MYCOPHENOLATE MOFETIL
     Indication: Immunosuppressant drug therapy
     Dosage: 750 MILLIGRAM/SQ. METER, QD
     Route: 065
     Dates: start: 202202
  2. MYCOPHENOLATE MOFETIL [Suspect]
     Active Substance: MYCOPHENOLATE MOFETIL
     Dosage: 540 MILLIGRAM/SQ. METER, QD
     Route: 065
     Dates: start: 202312
  3. MYCOPHENOLATE MOFETIL [Suspect]
     Active Substance: MYCOPHENOLATE MOFETIL
     Dosage: 530 MILLIGRAM/SQ. METER, QD, DOSE REDUCED
     Route: 065
     Dates: start: 202312
  4. TACROLIMUS [Suspect]
     Active Substance: TACROLIMUS
     Indication: Immunosuppressant drug therapy
     Route: 061
  5. TACROLIMUS [Suspect]
     Active Substance: TACROLIMUS
     Dosage: 0.05 MILLIGRAM/KILOGRAM, QD
     Route: 048
     Dates: start: 202202
  6. TACROLIMUS [Suspect]
     Active Substance: TACROLIMUS
     Route: 048
     Dates: start: 202407
  7. METHYLPREDNISOLONE [Suspect]
     Active Substance: METHYLPREDNISOLONE
     Indication: Immunosuppressant drug therapy
     Route: 042
     Dates: start: 202202
  8. PREDNISONE [Suspect]
     Active Substance: PREDNISONE
     Indication: Immunosuppressant drug therapy
     Dosage: 2.5 MILLIGRAM, QD
     Route: 065
     Dates: start: 202202
  9. PREDNISONE [Suspect]
     Active Substance: PREDNISONE
     Route: 065
  10. THYMOGLOBULIN [Suspect]
     Active Substance: LAPINE T-LYMPHOCYTE IMMUNE GLOBULIN
     Indication: Immunosuppressant drug therapy
     Route: 065
     Dates: start: 202202

REACTIONS (1)
  - Trichodysplasia spinulosa [Recovered/Resolved]
